FAERS Safety Report 5999700-1 (Version None)
Quarter: 2008Q4

REPORT INFORMATION
  Report Type: 
  Country: None (occurrence: None)
  Receive Date: 20081211
  Receipt Date: 20081211
  Transmission Date: 20090506
  Serious: Yes (Hospitalization)
  Sender: FDA-Public Use
  Company Number: None

PATIENT
  Age: 71 Year
  Sex: Male
  Weight: 75.2971 kg

DRUGS (2)
  1. AZITHROMYCIN [Suspect]
     Indication: BRONCHITIS
     Dosage: 250MG TAB 2 TAB X 1 PO
     Route: 048
     Dates: start: 20081126
  2. QUALAQUIN [Suspect]
     Indication: MUSCLE SPASMS
     Dosage: 324MG QHS PO
     Route: 048
     Dates: end: 20081124

REACTIONS (3)
  - ISCHAEMIA [None]
  - PALPITATIONS [None]
  - VENTRICULAR TACHYCARDIA [None]
